FAERS Safety Report 9738737 (Version 1)
Quarter: 2013Q4

REPORT INFORMATION
  Report Type: Report from Study
  Country: DE (occurrence: DE)
  Receive Date: 20131209
  Receipt Date: 20131209
  Transmission Date: 20140711
  Serious: Yes (Other)
  Sender: FDA-Public Use
  Company Number: DE-BEH-2013039269

PATIENT
  Age: 53 Year
  Sex: Female
  Weight: 94 kg

DRUGS (7)
  1. PRIVIGEN [Suspect]
     Dosage: MIN./MAX. INFUSION RATE 24/80 ML/MIN
     Route: 042
     Dates: start: 20121029, end: 20121029
  2. PRIVIGEN [Suspect]
     Dosage: MIN./MAX. INFUSION RATE 24/80 ML/MIN
     Route: 042
     Dates: start: 20121129, end: 20121129
  3. PRIVIGEN [Suspect]
     Indication: HYPER IGM SYNDROME
     Dosage: MIN./MAX. INFUSION RATE 24/80 ML/MIN
     Route: 042
     Dates: start: 20130108, end: 20130108
  4. PRIVIGEN [Suspect]
     Dosage: MIN./MAX. INFUSION RATE 24/80 ML/MIN
     Route: 042
     Dates: start: 20130208, end: 20130208
  5. PRIVIGEN [Suspect]
     Dosage: MIN./MAX. INFUSION RATE 24/80 ML/MIN
     Route: 042
     Dates: start: 20130321, end: 20130321
  6. PRIVIGEN [Suspect]
     Dosage: MIN./MAX. INFUSION RATE 24/80 ML/MIN
     Route: 042
     Dates: start: 20130429, end: 20130429
  7. LEXIMIR [Concomitant]

REACTIONS (3)
  - Conjunctivitis [Recovered/Resolved]
  - Upper respiratory tract infection [Recovered/Resolved]
  - Upper respiratory tract infection [Recovered/Resolved]
